FAERS Safety Report 4352811-9 (Version None)
Quarter: 2004Q2

REPORT INFORMATION
  Report Type: 
  Country: None (occurrence: None)
  Receive Date: 20040429
  Receipt Date: 20040413
  Transmission Date: 20050107
  Serious: Yes (Hospitalization)
  Sender: FDA-Public Use
  Company Number: 8004820

PATIENT
  Age: 46 Year
  Sex: Male

DRUGS (11)
  1. KEPPRA [Suspect]
     Indication: EPILEPSY
     Dosage: 750 MG 2 /D PO
     Route: 048
     Dates: start: 20031118, end: 20031219
  2. ZANTAC [Suspect]
     Indication: PROPHYLAXIS
     Dates: start: 20031201, end: 20031201
  3. CIPROFLOXACIN [Suspect]
     Dates: start: 20031201, end: 20031219
  4. ZOSYN [Suspect]
     Dates: start: 20031201, end: 20031219
  5. DEPAKOTE [Concomitant]
  6. TRILEPTAL [Concomitant]
  7. DECADRON [Concomitant]
  8. REGLAN [Concomitant]
  9. COLACE [Concomitant]
  10. PROTONIX [Concomitant]
  11. ALBUTEROL [Concomitant]

REACTIONS (22)
  - AMMONIA DECREASED [None]
  - APHASIA [None]
  - CONVULSION [None]
  - DRUG TOXICITY [None]
  - ENCEPHALOPATHY [None]
  - FALL [None]
  - GAIT DISTURBANCE [None]
  - HAEMATOCRIT DECREASED [None]
  - HEAD INJURY [None]
  - IIIRD NERVE PARALYSIS [None]
  - MALAISE [None]
  - MENTAL STATUS CHANGES [None]
  - METABOLIC ENCEPHALOPATHY [None]
  - OPEN WOUND [None]
  - PNEUMONIA ASPIRATION [None]
  - PNEUMONITIS [None]
  - POST PROCEDURAL COMPLICATION [None]
  - RESPIRATORY DISTRESS [None]
  - SUBDURAL HYGROMA [None]
  - THROMBOCYTOPENIA [None]
  - UPPER RESPIRATORY TRACT INFECTION [None]
  - VIRAL INFECTION [None]
